FAERS Safety Report 15948885 (Version 1)
Quarter: 2019Q1

REPORT INFORMATION
  Report Type: Spontaneous
  Country: PT (occurrence: GB)
  Receive Date: 20190212
  Receipt Date: 20190212
  Transmission Date: 20190417
  Serious: Yes (Death, Life-Threatening, Other)
  Sender: FDA-Public Use
  Company Number: PT-ACCORD-105847

PATIENT
  Age: 66 Year
  Sex: Male

DRUGS (1)
  1. ALLOPURINOL. [Suspect]
     Active Substance: ALLOPURINOL
     Indication: GOUT

REACTIONS (3)
  - Epstein-Barr virus infection [Unknown]
  - Drug reaction with eosinophilia and systemic symptoms [Unknown]
  - Haemophagocytic lymphohistiocytosis [Fatal]
